FAERS Safety Report 11194715 (Version 2)
Quarter: 2015Q3

REPORT INFORMATION
  Report Type: Report from Study
  Country: BR (occurrence: BR)
  Receive Date: 20150617
  Receipt Date: 20150827
  Transmission Date: 20151125
  Serious: Yes (Other)
  Sender: FDA-Public Use
  Company Number: BR-ROCHE-1406544

PATIENT
  Age: 39 Year
  Sex: Female
  Weight: 69 kg

DRUGS (14)
  1. MABTHERA [Suspect]
     Active Substance: RITUXIMAB
     Indication: RHEUMATOID ARTHRITIS
     Dosage: LAST INFUSION ON 26/JUN/2015.
     Route: 042
     Dates: start: 20130415
  2. MABTHERA [Suspect]
     Active Substance: RITUXIMAB
     Route: 042
     Dates: start: 201310
  3. HUMALOG [Concomitant]
     Active Substance: INSULIN LISPRO
  4. PROFENID [Concomitant]
     Active Substance: KETOPROFEN
     Route: 042
  5. MEFENAMIC-ACID [Concomitant]
     Active Substance: MEFENAMIC ACID
     Indication: DYSMENORRHOEA
  6. NAPROXEN. [Concomitant]
     Active Substance: NAPROXEN
  7. OMEPRAZOLE. [Concomitant]
     Active Substance: OMEPRAZOLE
     Route: 065
  8. ANTAK [Concomitant]
     Active Substance: RANITIDINE HYDROCHLORIDE
  9. BUSCOPAN [Concomitant]
     Active Substance: BUTYLSCOPOLAMINE BROMIDE
     Indication: LACTOSE INTOLERANCE
  10. MABTHERA [Suspect]
     Active Substance: RITUXIMAB
     Route: 042
     Dates: start: 201404, end: 20141114
  11. MABTHERA [Suspect]
     Active Substance: RITUXIMAB
     Dosage: LATEST INFUSION : 28/APR/2014
     Route: 042
     Dates: start: 20130429
  12. INSULIN [Concomitant]
     Active Substance: INSULIN NOS
  13. LANTUS [Concomitant]
     Active Substance: INSULIN GLARGINE
  14. MEFENAMIC-ACID [Concomitant]
     Active Substance: MEFENAMIC ACID
     Indication: RHEUMATOID ARTHRITIS

REACTIONS (30)
  - Pain [Not Recovered/Not Resolved]
  - Pruritus [Unknown]
  - Lactose intolerance [Unknown]
  - Fibromyalgia [Not Recovered/Not Resolved]
  - Sluggishness [Recovered/Resolved]
  - Milk allergy [Not Recovered/Not Resolved]
  - Agitation [Unknown]
  - Fatigue [Unknown]
  - Insomnia [Not Recovered/Not Resolved]
  - Blood glucose decreased [Unknown]
  - Swelling [Unknown]
  - Headache [Unknown]
  - Nervousness [Unknown]
  - Syncope [Unknown]
  - Gait disturbance [Not Recovered/Not Resolved]
  - Hypersensitivity [Unknown]
  - Skin plaque [Unknown]
  - Weight decreased [Unknown]
  - Nausea [Recovered/Resolved]
  - Onychomadesis [Unknown]
  - Nail disorder [Unknown]
  - Dry skin [Not Recovered/Not Resolved]
  - Peripheral swelling [Unknown]
  - Asthenia [Not Recovered/Not Resolved]
  - Alopecia [Unknown]
  - Bedridden [Unknown]
  - Malaise [Unknown]
  - Arthralgia [Not Recovered/Not Resolved]
  - Pruritus [Unknown]
  - Arthropathy [Not Recovered/Not Resolved]

NARRATIVE: CASE EVENT DATE: 20130423
